FAERS Safety Report 13070007 (Version 3)
Quarter: 2017Q1

REPORT INFORMATION
  Report Type: Report from Study
  Country: None (occurrence: PA)
  Receive Date: 20161228
  Receipt Date: 20170317
  Transmission Date: 20170428
  Serious: Yes (Hospitalization, Other)
  Sender: FDA-Public Use
  Company Number: PA-ABBVIE-16P-125-1822323-00

PATIENT
  Age: 53 Year
  Sex: Male

DRUGS (1)
  1. ZEMPLAR [Suspect]
     Active Substance: PARICALCITOL
     Indication: HYPERPARATHYROIDISM SECONDARY
     Route: 042
     Dates: start: 20140103, end: 20160729

REACTIONS (12)
  - Diabetic foot [Recovering/Resolving]
  - Nausea [Recovering/Resolving]
  - Diabetes mellitus [Unknown]
  - Leg amputation [Unknown]
  - Vomiting [Recovering/Resolving]
  - Fracture [Unknown]
  - Jaundice [Recovering/Resolving]
  - Hypoglycaemia [Recovering/Resolving]
  - General physical health deterioration [Unknown]
  - Asthenia [Recovering/Resolving]
  - Liver abscess [Unknown]
  - Extremity necrosis [Recovering/Resolving]

NARRATIVE: CASE EVENT DATE: 20161205
